FAERS Safety Report 21036357 (Version 1)
Quarter: 2022Q3

REPORT INFORMATION
  Report Type: Spontaneous
  Country: ES (occurrence: ES)
  Receive Date: 20220702
  Receipt Date: 20220702
  Transmission Date: 20221027
  Serious: Yes (Hospitalization, Other)
  Sender: FDA-Public Use
  Company Number: ES-AEMPS-1207700

PATIENT
  Age: 56 Year
  Sex: Female

DRUGS (2)
  1. BISOPROLOL [Interacting]
     Active Substance: BISOPROLOL
     Indication: Product used for unknown indication
     Dosage: UNK
     Route: 048
     Dates: start: 20090915
  2. OLMESARTAN [Interacting]
     Active Substance: OLMESARTAN
     Indication: Product used for unknown indication
     Dosage: UNK
     Route: 048
     Dates: start: 20170131

REACTIONS (1)
  - Syncope [Recovered/Resolved]

NARRATIVE: CASE EVENT DATE: 20220208
